FAERS Safety Report 7503722-9 (Version None)
Quarter: 2011Q2

REPORT INFORMATION
  Report Type: 
  Country: None (occurrence: None)
  Receive Date: 20110518
  Receipt Date: 20110503
  Transmission Date: 20111010
  Serious: Yes (Other)
  Sender: FDA-Public Use
  Company Number: BE-1185621

PATIENT
  Sex: Male

DRUGS (4)
  1. SIPRALEXA [Concomitant]
  2. NEXIUM [Concomitant]
  3. LEXOTAN [Concomitant]
  4. TRAVATAN [Suspect]
     Indication: OCULAR HYPERTENSION
     Dosage: 1 GTT QD, OU OPHTHALMIC
     Route: 047
     Dates: start: 20110125, end: 20110220

REACTIONS (1)
  - ASTHMATIC CRISIS [None]
